FAERS Safety Report 7057946-8 (Version None)
Quarter: 2010Q4

REPORT INFORMATION
  Report Type: 
  Country: None (occurrence: None)
  Receive Date: 20101022
  Receipt Date: 20101013
  Transmission Date: 20110411
  Serious: Yes (Hospitalization)
  Sender: FDA-Public Use
  Company Number: DE-TEVA-251694GER

PATIENT
  Age: 69 Year
  Sex: Male
  Weight: 90 kg

DRUGS (10)
  1. LOSARTAN POTASSIUM AND HYDROCHLOROTHIAZIDE [Suspect]
     Indication: HYPERTENSION
     Dates: start: 20100601, end: 20100616
  2. BROMAZEPAM [Concomitant]
  3. PRAVASTATIN [Concomitant]
     Indication: DYSLIPIDAEMIA
  4. BUFLOMEDIL [Concomitant]
     Indication: PERIPHERAL ARTERIAL OCCLUSIVE DISEASE
  5. PREDNISOLONE [Concomitant]
     Indication: COLITIS ULCERATIVE
  6. ACETYLSALICYLIC ACID SRT [Concomitant]
     Indication: PERIPHERAL ARTERIAL OCCLUSIVE DISEASE
  7. AMLODIPINE [Concomitant]
     Indication: HYPERTENSION
     Dates: start: 20100701
  8. CARVEDILOL [Concomitant]
  9. ISOSORBIDE DINITRATE [Concomitant]
  10. ENALAPRIL MALEATE [Concomitant]

REACTIONS (2)
  - DRUG INEFFECTIVE [None]
  - HYPERTENSIVE CRISIS [None]
